FAERS Safety Report 25389510 (Version 2)
Quarter: 2025Q3

REPORT INFORMATION
  Report Type: Spontaneous
  Country: US (occurrence: US)
  Receive Date: 20250603
  Receipt Date: 20250707
  Transmission Date: 20251021
  Serious: No
  Sender: ELI LILLY AND COMPANY
  Company Number: US-ELI_LILLY_AND_COMPANY-US202506000279

PATIENT
  Age: 72 Year
  Sex: Female

DRUGS (1)
  1. TALTZ [Suspect]
     Active Substance: IXEKIZUMAB
     Indication: Ankylosing spondylitis
     Dosage: 80 MG, MONTHLY (1/M) (EVERY 4 WEEKS)
     Route: 058

REACTIONS (9)
  - Pulmonary congestion [Not Recovered/Not Resolved]
  - Chills [Unknown]
  - Eye pruritus [Unknown]
  - Lacrimation increased [Unknown]
  - Nasal herpes [Recovering/Resolving]
  - Ankylosing spondylitis [Recovered/Resolved]
  - Pain in extremity [Unknown]
  - Hypersensitivity [Unknown]
  - Nasopharyngitis [Unknown]
